FAERS Safety Report 17052503 (Version 2)
Quarter: 2021Q2

REPORT INFORMATION
  Report Type: Report from Study
  Country: FR (occurrence: FR)
  Receive Date: 20191120
  Receipt Date: 20210401
  Transmission Date: 20210716
  Serious: Yes (Other)
  Sender: FDA-Public Use
  Company Number: FR-ASTELLAS-2019US045723

PATIENT
  Sex: Female
  Weight: 60 kg

DRUGS (4)
  1. ASPIRINE PROTECT [Concomitant]
     Active Substance: ASPIRIN
     Indication: HYPERTENSION
     Route: 065
     Dates: start: 20170628
  2. IMUREL [AZATHIOPRINE] [Concomitant]
     Active Substance: AZATHIOPRINE
     Indication: RENAL AND PANCREAS TRANSPLANT
     Route: 065
     Dates: start: 20170629
  3. TENORMINE [Concomitant]
     Active Substance: ATENOLOL
     Indication: HYPERTENSION
     Route: 065
     Dates: start: 2014
  4. TACROLIMUS. [Suspect]
     Active Substance: TACROLIMUS
     Indication: RENAL AND PANCREAS TRANSPLANT
     Route: 048
     Dates: start: 20170629

REACTIONS (2)
  - Maternal exposure during pregnancy [Unknown]
  - Abortion spontaneous [Recovered/Resolved]

NARRATIVE: CASE EVENT DATE: 201808
